FAERS Safety Report 10339492 (Version 2)
Quarter: 2014Q3

REPORT INFORMATION
  Report Type: Spontaneous
  Country: US (occurrence: US)
  Receive Date: 20140724
  Receipt Date: 20140924
  Transmission Date: 20150326
  Serious: Yes (Life-Threatening, Hospitalization)
  Sender: FDA-Public Use
  Company Number: US-BAYER-2014-109517

PATIENT
  Age: 28 Year
  Sex: Female
  Weight: 59.86 kg

DRUGS (4)
  1. LITHIUM [Concomitant]
     Active Substance: LITHIUM CARBONATE
     Dosage: UNK
     Dates: start: 200801
  2. AMBIEN [Concomitant]
     Active Substance: ZOLPIDEM TARTRATE
     Dosage: UNK
     Dates: start: 200801
  3. MIRENA [Suspect]
     Active Substance: LEVONORGESTREL
     Indication: CONTRACEPTION
     Dosage: 20 MCG/24HR, CONT
     Route: 015
     Dates: start: 20071128, end: 20130617
  4. LYRICA [Concomitant]
     Active Substance: PREGABALIN

REACTIONS (12)
  - Device misuse [None]
  - Injury [None]
  - Abdominal pain [None]
  - General physical health deterioration [None]
  - Anxiety [None]
  - Device issue [None]
  - Infection [None]
  - Medical device discomfort [None]
  - Emotional distress [None]
  - Uterine perforation [None]
  - Scar [None]
  - Anhedonia [None]
